FAERS Safety Report 14963394 (Version 1)
Quarter: 2018Q2

REPORT INFORMATION
  Report Type: Spontaneous
  Country: US (occurrence: US)
  Receive Date: 20180601
  Receipt Date: 20180601
  Transmission Date: 20180711
  Serious: No
  Sender: FDA-Public Use
  Company Number: US-ABBVIE-17P-163-2178783-00

PATIENT
  Age: 28 Year
  Sex: Male

DRUGS (1)
  1. MARINOL [Suspect]
     Active Substance: DRONABINOL
     Indication: NAUSEA
     Route: 048
     Dates: start: 2013

REACTIONS (1)
  - Drug screen positive [Not Recovered/Not Resolved]

NARRATIVE: CASE EVENT DATE: 20171121
